FAERS Safety Report 4337482-X (Version None)
Quarter: 2004Q2

REPORT INFORMATION
  Report Type: 
  Country: None (occurrence: None)
  Receive Date: 20040408
  Receipt Date: 20031206
  Transmission Date: 20050107
  Serious: Yes (Hospitalization)
  Sender: FDA-Public Use
  Company Number: 234876K03USA

PATIENT
  Age: 65 Year
  Sex: Female

DRUGS (8)
  1. REBIF [Suspect]
     Indication: MULTIPLE SCLEROSIS
     Dosage: 22 MCG, NOT REPORTED, NOT REPORTED
  2. FUROSEMIDE [Concomitant]
  3. LANSOPRAZOLE [Concomitant]
  4. TOLTERODINE TARTRATE [Concomitant]
  5. TERAZOSIN HCL [Concomitant]
  6. TIZANIDINE HYDROCHLORIDE [Concomitant]
  7. HYOSCYAMINE SULFATE [Concomitant]
  8. GLYCERYL TRINITRATE [Concomitant]

REACTIONS (1)
  - CHEST PAIN [None]
